FAERS Safety Report 6987081-6 (Version None)
Quarter: 2010Q3

REPORT INFORMATION
  Report Type: 
  Country: None (occurrence: None)
  Receive Date: 20100916
  Receipt Date: 20100701
  Transmission Date: 20110219
  Serious: Yes (Life-Threatening, Hospitalization)
  Sender: FDA-Public Use
  Company Number: US-BAYER-201014758NA

PATIENT
  Age: 27 Year
  Sex: Female
  Weight: 54 kg

DRUGS (4)
  1. YAZ [Suspect]
     Indication: ACNE
     Route: 048
     Dates: start: 20070101, end: 20070201
  2. ANTIBIOTICS [Concomitant]
     Route: 065
  3. ADVIL LIQUI-GELS [Concomitant]
     Route: 065
     Dates: end: 20070201
  4. FOLIC ACID [Concomitant]
     Route: 065
     Dates: start: 19800721

REACTIONS (2)
  - PULMONARY EMBOLISM [None]
  - PULMONARY FUNCTION TEST DECREASED [None]
